FAERS Safety Report 7119359-X (Version None)
Quarter: 2010Q4

REPORT INFORMATION
  Report Type: 
  Country: None (occurrence: None)
  Receive Date: 20101123
  Receipt Date: 20101121
  Transmission Date: 20110411
  Serious: Yes (Hospitalization, Other)
  Sender: FDA-Public Use
  Company Number: US-PFIZER INC-2007037845

PATIENT
  Sex: Male
  Weight: 71.67 kg

DRUGS (2)
  1. TIKOSYN [Suspect]
     Indication: ATRIAL FIBRILLATION
     Route: 048
     Dates: start: 20070401
  2. METOPROLOL [Concomitant]
     Dosage: BID
     Route: 048

REACTIONS (2)
  - ATRIAL FIBRILLATION [None]
  - ELECTROCARDIOGRAM QT PROLONGED [None]
